FAERS Safety Report 10682254 (Version 4)
Quarter: 2015Q3

REPORT INFORMATION
  Report Type: Report from Study
  Country: US (occurrence: US)
  Receive Date: 20141230
  Receipt Date: 20150731
  Transmission Date: 20151125
  Serious: Yes (Other)
  Sender: FDA-Public Use
  Company Number: US-SA-2014SA161666

PATIENT
  Age: 60 Year
  Sex: Female

DRUGS (3)
  1. AUBAGIO [Suspect]
     Active Substance: TERIFLUNOMIDE
     Indication: MULTIPLE SCLEROSIS
     Route: 048
     Dates: start: 201410
  2. AMPYRA [Concomitant]
     Active Substance: DALFAMPRIDINE
  3. AMPYRA [Concomitant]
     Active Substance: DALFAMPRIDINE

REACTIONS (17)
  - Blood creatinine increased [Unknown]
  - Condition aggravated [Unknown]
  - Surgery [Unknown]
  - Lymphoedema [Unknown]
  - Dysphagia [Unknown]
  - Paraesthesia [Unknown]
  - Shoulder operation [Unknown]
  - Pain [Unknown]
  - Musculoskeletal pain [Unknown]
  - Gait disturbance [Unknown]
  - Muscular weakness [Unknown]
  - Muscle rupture [Unknown]
  - Fluid retention [Unknown]
  - Skin discolouration [Unknown]
  - Hypoaesthesia [Unknown]
  - Hip arthroplasty [Unknown]
  - Fall [Unknown]

NARRATIVE: CASE EVENT DATE: 2014
